FAERS Safety Report 8506980 (Version 2)
Quarter: 2012Q4

REPORT INFORMATION
  Report Type: 
  Country: US (occurrence: US)
  Receive Date: 20120412
  Receipt Date: 20121120
  Transmission Date: 20130627
  Serious: No
  Sender: FDA-Public Use
  Company Number: US-ASTRAZENECA-2011SE46187

PATIENT
  Age: 63 Year
  Sex: Male
  Weight: 65.8 kg

DRUGS (2)
  1. NEXIUM [Suspect]
     Route: 048
  2. SEROQUEL [Suspect]
     Indication: SLEEP DISORDER
     Route: 048
     Dates: start: 2009

REACTIONS (7)
  - Gastrooesophageal reflux disease [Unknown]
  - Intervertebral disc disorder [Unknown]
  - Weight decreased [Unknown]
  - Abdominal discomfort [Recovered/Resolved]
  - Muscular weakness [Unknown]
  - Vomiting [Recovered/Resolved]
  - Intentional drug misuse [Unknown]
